FAERS Safety Report 5167797-7 (Version None)
Quarter: 2006Q4

REPORT INFORMATION
  Report Type: 
  Country: None (occurrence: None)
  Receive Date: 20061208
  Receipt Date: 20060928
  Transmission Date: 20070319
  Serious: Yes (Hospitalization)
  Sender: FDA-Public Use
  Company Number: PHHO2006JP16327

PATIENT
  Age: 73 Year
  Sex: Male

DRUGS (6)
  1. LASIX [Concomitant]
     Dosage: UNK, UNK
  2. LANSOPRAZOLE [Concomitant]
     Dosage: UNK, UNK
  3. DOMPERIDONE [Concomitant]
     Dates: start: 20030122, end: 20040409
  4. TOWARAT [Concomitant]
     Indication: HYPERTENSION
  5. OMEPRAL [Concomitant]
     Indication: GASTRIC ULCER
  6. DIOVAN [Suspect]
     Indication: HYPERTENSION
     Dosage: 80 MG, QD
     Route: 048
     Dates: start: 20030122, end: 20051008

REACTIONS (3)
  - FLATULENCE [None]
  - ILEUS [None]
  - VOMITING [None]
